FAERS Safety Report 16245350 (Version 1)
Quarter: 2019Q2

REPORT INFORMATION
  Report Type: Spontaneous
  Country: GB (occurrence: GB)
  Receive Date: 20190426
  Receipt Date: 20190426
  Transmission Date: 20190711
  Serious: Yes (Other)
  Sender: FDA-Public Use
  Company Number: GB-TEVA-2019-GB-1042260

PATIENT
  Age: 45 Year
  Sex: Female
  Weight: 83 kg

DRUGS (10)
  1. PREGABALIN. [Concomitant]
     Active Substance: PREGABALIN
     Dosage: 2 DOSAGE FORMS DAILY;
     Dates: start: 20170306
  2. AMITRIPTYLINE HYDROCHLORIDE. [Concomitant]
     Active Substance: AMITRIPTYLINE HYDROCHLORIDE
     Dosage: 1 DOSAGE FORMS DAILY; NIGHT
     Dates: start: 20190211
  3. LEVOTHYROXINE. [Concomitant]
     Active Substance: LEVOTHYROXINE
     Dosage: 200 MICROGRAM DAILY;
     Dates: start: 20170306
  4. NITROFURANTOIN. [Suspect]
     Active Substance: NITROFURANTOIN
     Dosage: 200 MILLIGRAM DAILY;
     Dates: start: 20190320
  5. NAPROXEN. [Concomitant]
     Active Substance: NAPROXEN
     Dosage: 2 DOSAGE FORMS DAILY;
     Dates: start: 20190212, end: 20190312
  6. MACROGOL [Concomitant]
     Active Substance: POLYETHYLENE GLYCOLS
     Dosage: USE AS DIRECTED
     Dates: start: 20180531
  7. ESTRADIOL. [Concomitant]
     Active Substance: ESTRADIOL
     Dosage: 1 DOSAGE FORMS DAILY;
     Dates: start: 20170306
  8. SERTRALINE [Concomitant]
     Active Substance: SERTRALINE HYDROCHLORIDE
     Dosage: 1 DOSAGE FORMS DAILY;
     Dates: start: 20170306
  9. TRIMETHOPRIM. [Concomitant]
     Active Substance: TRIMETHOPRIM
     Dosage: 2 DOSAGE FORMS DAILY;
     Dates: start: 20190322
  10. ZAPAIN [Concomitant]
     Active Substance: ACETAMINOPHEN\CODEINE PHOSPHATE
     Dosage: TAKE 1 OR 2 UP TO 4 TIMES/DAY
     Dates: start: 20170306

REACTIONS (1)
  - Mouth ulceration [Unknown]

NARRATIVE: CASE EVENT DATE: 20190322
